FAERS Safety Report 8997898 (Version 1)
Quarter: 2013Q1

REPORT INFORMATION
  Report Type: Spontaneous
  Country: FR (occurrence: FR)
  Receive Date: 20130104
  Receipt Date: 20130104
  Transmission Date: 20140127
  Serious: Yes (Death, Hospitalization)
  Sender: FDA-Public Use
  Company Number: FR-ROCHE-1173256

PATIENT
  Age: 77 Year
  Sex: Male

DRUGS (11)
  1. MABTHERA [Suspect]
     Indication: PRODUCT USED FOR UNKNOWN INDICATION
     Route: 042
     Dates: start: 20101007
  2. MABTHERA [Suspect]
     Route: 065
     Dates: start: 20101108
  3. MABTHERA [Suspect]
     Route: 065
     Dates: start: 20101206
  4. MABTHERA [Suspect]
     Route: 065
     Dates: start: 20110103
  5. MABTHERA [Suspect]
     Route: 065
     Dates: start: 20120412
  6. MABTHERA [Suspect]
     Route: 065
     Dates: start: 20120514
  7. MABTHERA [Suspect]
     Route: 065
     Dates: start: 20120611
  8. MABTHERA [Suspect]
     Route: 065
     Dates: start: 20120709
  9. MABTHERA [Suspect]
     Route: 065
     Dates: start: 20120806, end: 20120806
  10. BENDAMUSTINE HYDROCHLORIDE [Suspect]
     Indication: PRODUCT USED FOR UNKNOWN INDICATION
     Route: 042
     Dates: start: 20120412, end: 20120806
  11. CHLORAMINOPHENE [Concomitant]
     Route: 042
     Dates: start: 20101007, end: 20110103

REACTIONS (1)
  - Progressive multifocal leukoencephalopathy [Fatal]
